FAERS Safety Report 11889654 (Version 1)
Quarter: 2016Q1

REPORT INFORMATION
  Report Type: Spontaneous
  Country: US (occurrence: US)
  Receive Date: 20160105
  Receipt Date: 20160105
  Transmission Date: 20160526
  Serious: Yes (Other)
  Sender: FDA-Public Use
  Company Number: US-GILEAD-2015-0186357

PATIENT
  Age: 56 Year
  Sex: Male
  Weight: 70.75 kg

DRUGS (9)
  1. HARVONI [Suspect]
     Active Substance: LEDIPASVIR\SOFOSBUVIR
     Indication: HEPATITIS C
     Dosage: 1 DF, UNK
     Route: 048
     Dates: start: 20150530, end: 20150821
  2. VITAMIN D3 [Concomitant]
     Active Substance: CHOLECALCIFEROL
  3. LOSARTAN. [Concomitant]
     Active Substance: LOSARTAN
  4. OMEPRAZOLE. [Concomitant]
     Active Substance: OMEPRAZOLE
     Dosage: 20 MG, QD
     Route: 048
  5. ASA [Concomitant]
     Active Substance: ASPIRIN
  6. CITRIC ACID [Concomitant]
     Active Substance: CITRIC ACID MONOHYDRATE
  7. PRAVASTATIN [Concomitant]
     Active Substance: PRAVASTATIN\PRAVASTATIN SODIUM
  8. FLOMAX [Concomitant]
     Active Substance: TAMSULOSIN HYDROCHLORIDE
  9. NIFEDIPINE. [Concomitant]
     Active Substance: NIFEDIPINE

REACTIONS (2)
  - Drug ineffective [Not Recovered/Not Resolved]
  - Hepatitis C [Not Recovered/Not Resolved]

NARRATIVE: CASE EVENT DATE: 20151120
